FAERS Safety Report 7711740-0 (Version None)
Quarter: 2011Q3

REPORT INFORMATION
  Report Type: 
  Country: None (occurrence: None)
  Receive Date: 20110826
  Receipt Date: 20110822
  Transmission Date: 20111222
  Serious: Yes (Hospitalization, Disabling, Other)
  Sender: FDA-Public Use
  Company Number: US-TEVA-294820USA

PATIENT
  Sex: Male

DRUGS (1)
  1. PROAIR HFA [Suspect]
     Indication: ASTHMA
     Route: 055

REACTIONS (9)
  - GASTROINTESTINAL DISORDER [None]
  - GAIT DISTURBANCE [None]
  - JOINT INJURY [None]
  - FALL [None]
  - HAEMORRHOIDS [None]
  - SKELETAL INJURY [None]
  - CONVULSION [None]
  - HEAD INJURY [None]
  - RECTAL HAEMORRHAGE [None]
